FAERS Safety Report 23359528 (Version 1)
Quarter: 2024Q1

REPORT INFORMATION
  Report Type: Spontaneous
  Country: DE (occurrence: DE)
  Receive Date: 20240103
  Receipt Date: 20240103
  Transmission Date: 20240410
  Serious: Yes (Hospitalization, Other)
  Sender: FDA-Public Use
  Company Number: None

PATIENT
  Age: 37 Year
  Sex: Female

DRUGS (9)
  1. LUVERIS [Suspect]
     Active Substance: LUTROPIN ALFA
     Indication: Assisted reproductive technology
     Dates: start: 20231011, end: 20231011
  2. FOLLITROPIN\LUTROPIN ALFA [Suspect]
     Active Substance: FOLLITROPIN\LUTROPIN ALFA
     Indication: Assisted reproductive technology
     Dates: start: 20231002, end: 20231003
  3. ORGALUTRAN [Suspect]
     Active Substance: GANIRELIX ACETATE
     Indication: Assisted reproductive technology
     Dates: start: 20231007, end: 20231011
  4. TRIPTORELIN ACETATE [Suspect]
     Active Substance: TRIPTORELIN ACETATE
     Indication: Assisted reproductive technology
     Dates: start: 20231012, end: 20231012
  5. FOLLITROPIN BETA [Suspect]
     Active Substance: FOLLITROPIN BETA
     Indication: Assisted reproductive technology
     Dates: start: 20231004, end: 20231004
  6. FOLLITROPIN BETA [Suspect]
     Active Substance: FOLLITROPIN BETA
     Dates: start: 20231005, end: 20231005
  7. FOLLITROPIN BETA [Suspect]
     Active Substance: FOLLITROPIN BETA
     Dates: start: 20231006, end: 20231009
  8. FOLLITROPIN BETA [Suspect]
     Active Substance: FOLLITROPIN BETA
     Dates: start: 20231010, end: 20231010
  9. FOLLITROPIN BETA [Suspect]
     Active Substance: FOLLITROPIN BETA
     Dates: start: 20231011, end: 20231011

REACTIONS (2)
  - Ovarian hyperstimulation syndrome [Recovered/Resolved]
  - Pyrexia [Recovered/Resolved]

NARRATIVE: CASE EVENT DATE: 20231014
